FAERS Safety Report 5331139-4 (Version None)
Quarter: 2007Q2

REPORT INFORMATION
  Report Type: 
  Country: None (occurrence: None)
  Receive Date: 20070518
  Receipt Date: 20070518
  Transmission Date: 20071010
  Serious: Yes (Hospitalization)
  Sender: FDA-Public Use
  Company Number: None

PATIENT
  Sex: Female
  Weight: 49.55 kg

DRUGS (1)
  1. TEMOZOLOMIDE [Suspect]
     Dosage: 75 MG

REACTIONS (4)
  - ABDOMINAL DISCOMFORT [None]
  - CONSTIPATION [None]
  - DIARRHOEA [None]
  - X-RAY GASTROINTESTINAL TRACT ABNORMAL [None]
